FAERS Safety Report 6557518-5 (Version None)
Quarter: 2010Q1

REPORT INFORMATION
  Report Type: 
  Country: None (occurrence: None)
  Receive Date: 20100129
  Receipt Date: 20100121
  Transmission Date: 20100710
  Serious: Yes (Hospitalization)
  Sender: FDA-Public Use
  Company Number: SE-ROCHE-680812

PATIENT
  Age: 49 Year
  Sex: Female

DRUGS (7)
  1. XELODA [Suspect]
     Indication: DRUG USE FOR UNKNOWN INDICATION
     Route: 065
  2. BETAPRED [Suspect]
     Indication: DRUG USE FOR UNKNOWN INDICATION
     Dosage: DRUG REPORTED AS BETAPRED TABLET 0.5 MG
     Route: 048
  3. MINIDERM [Concomitant]
     Dosage: DRUG REPORTED AS MINIDREM CREAM 20%
  4. CETIRIZINE HCL [Concomitant]
     Dosage: DRUG REPORTED AS CETIRIZIN ACTAVIS FC TABLET 10 MG.
  5. BUPRENORPHINE [Concomitant]
     Route: 062
  6. TYVERB [Concomitant]
     Dosage: DRUG REPORTED AS TYVERB FC TABLET 250 MG.
  7. ACETAMINOPHEN [Concomitant]
     Dosage: DRUG REPORTED AS PANODIL FC TABLET 500 MG.

REACTIONS (1)
  - DIABETES MELLITUS [None]
